FAERS Safety Report 23839930 (Version 1)
Quarter: 2024Q2

REPORT INFORMATION
  Report Type: Spontaneous
  Country: US (occurrence: US)
  Receive Date: 20240510
  Receipt Date: 20240510
  Transmission Date: 20240715
  Serious: No
  Sender: FDA-Public Use
  Company Number: US-BRISTOL-MYERS SQUIBB COMPANY-2024-070225

PATIENT
  Age: 52 Year
  Sex: Male
  Weight: 73.4 kg

DRUGS (1)
  1. NULOJIX [Suspect]
     Active Substance: BELATACEPT
     Indication: Renal transplant
     Dosage: DOSE : 350MG;     FREQ : EVERY 28 DAYS
     Route: 042
     Dates: end: 20240416

REACTIONS (1)
  - Off label use [Unknown]
